FAERS Safety Report 9046297 (Version 1)
Quarter: 2013Q1

REPORT INFORMATION
  Report Type: Spontaneous
  Country: PL (occurrence: PL)
  Receive Date: 20130201
  Receipt Date: 20130201
  Transmission Date: 20140127
  Serious: Yes (Other)
  Sender: FDA-Public Use
  Company Number: PL-JNJFOC-20130114551

PATIENT
  Sex: Female

DRUGS (1)
  1. REMICADE [Suspect]
     Indication: FOETAL EXPOSURE DURING PREGNANCY
     Dosage: 0, 2, 4, 8 WEEKS
     Route: 064
     Dates: start: 20120320, end: 20120630

REACTIONS (1)
  - Premature baby [Not Recovered/Not Resolved]
